FAERS Safety Report 19164488 (Version 1)
Quarter: 2021Q2

REPORT INFORMATION
  Report Type: Spontaneous
  Country: US (occurrence: US)
  Receive Date: 20210421
  Receipt Date: 20210421
  Transmission Date: 20210717
  Serious: No
  Sender: FDA-Public Use
  Company Number: US-ELI_LILLY_AND_COMPANY-US202104005565

PATIENT
  Age: 61 Year
  Sex: Male
  Weight: 91 kg

DRUGS (2)
  1. BAMLANIVIMAB 700MG [Suspect]
     Active Substance: BAMLANIVIMAB
     Indication: COVID-19
     Dosage: 700 MG, SINGLE
     Route: 041
     Dates: start: 20210408, end: 20210408
  2. ETESEVIMAB 700MG [Suspect]
     Active Substance: ETESEVIMAB
     Indication: COVID-19
     Dosage: 1400 MG, SINGLE
     Route: 041
     Dates: start: 20210408, end: 20210408

REACTIONS (5)
  - Abdominal pain [Unknown]
  - Vomiting [Unknown]
  - Pyrexia [Unknown]
  - Nausea [Unknown]
  - Diarrhoea [Unknown]

NARRATIVE: CASE EVENT DATE: 20210408
